FAERS Safety Report 8383301-4 (Version None)
Quarter: 2012Q2

REPORT INFORMATION
  Report Type: 
  Country: None (occurrence: None)
  Receive Date: 20120524
  Receipt Date: 20120516
  Transmission Date: 20120825
  Serious: Yes (Life-Threatening, Other)
  Sender: FDA-Public Use
  Company Number: JP-PFIZER INC-2012098276

PATIENT
  Age: 59 Year
  Sex: Male
  Weight: 54.6 kg

DRUGS (8)
  1. HEPARIN [Suspect]
     Dosage: 1000 UNITS DAILY
     Route: 042
     Dates: start: 20120411, end: 20120411
  2. DEXAMETHASONE SODIUM PHOSPHATE [Concomitant]
     Dosage: 6.6 MG, 2X/DAY
     Route: 042
     Dates: start: 20120410, end: 20120420
  3. CEFAZOLIN SODIUM [Concomitant]
     Dosage: 1 G, 2X/DAY
     Route: 042
     Dates: start: 20120411, end: 20120414
  4. FAMOTIDINE [Concomitant]
     Dosage: 20 MG, 2X/DAY
     Route: 042
     Dates: start: 20120410, end: 20120420
  5. CARBAMAZEPINE [Concomitant]
     Dosage: 200 MG, 2X/DAY
     Dates: start: 20120412, end: 20120418
  6. FOSPHENYTOIN SODIUM [Suspect]
     Indication: PROPHYLAXIS
     Dosage: 975 MG, UNK
     Route: 042
     Dates: start: 20120411
  7. EDARAVONE [Concomitant]
     Dosage: 30 G, 2X/DAY
     Route: 042
     Dates: start: 20120411, end: 20120414
  8. FOSPHENYTOIN SODIUM [Suspect]
     Dosage: 450 MG, 1X/DAY
     Route: 042
     Dates: end: 20120414

REACTIONS (2)
  - HAEMOGLOBIN DECREASED [None]
  - THROMBOCYTOPENIA [None]
